FAERS Safety Report 19980919 (Version 1)
Quarter: 2021Q4

REPORT INFORMATION
  Report Type: Spontaneous
  Country: DE (occurrence: DE)
  Receive Date: 20211022
  Receipt Date: 20211022
  Transmission Date: 20220303
  Serious: Yes (Hospitalization, Other)
  Sender: FDA-Public Use
  Company Number: None

PATIENT
  Age: 51 Year
  Sex: Female
  Weight: 62 kg

DRUGS (1)
  1. FERRLECIT [Suspect]
     Active Substance: SODIUM FERRIC GLUCONATE COMPLEX
     Indication: Serum ferritin decreased
     Dosage: FERRLECIT 62.5 MG AMPOULES PZN: 09885431

REACTIONS (9)
  - Dysphagia [Unknown]
  - Tremor [Unknown]
  - Diarrhoea [Unknown]
  - Dyspnoea [Unknown]
  - Blood pressure decreased [Recovered/Resolved]
  - Vomiting [Unknown]
  - Chills [Unknown]
  - Anaphylactic shock [Unknown]
  - Nausea [Unknown]

NARRATIVE: CASE EVENT DATE: 20210830
